FAERS Safety Report 21579751 (Version 1)
Quarter: 2022Q4

REPORT INFORMATION
  Report Type: Spontaneous
  Country: US (occurrence: None)
  Receive Date: 20221109
  Receipt Date: 20221109
  Transmission Date: 20230113
  Serious: Yes (Hospitalization)
  Sender: FDA-Public Use
  Company Number: None

PATIENT
  Age: 62 Year
  Sex: Male

DRUGS (1)
  1. ABIRATERONE [Suspect]
     Active Substance: ABIRATERONE
     Dosage: 1000MG DAILY ORAL
     Route: 048
     Dates: start: 202211

REACTIONS (7)
  - Diarrhoea [None]
  - Vomiting [None]
  - Pain [None]
  - Confusional state [None]
  - Upper respiratory tract infection [None]
  - Hepatic enzyme increased [None]
  - Blood creatinine increased [None]

NARRATIVE: CASE EVENT DATE: 20221109
